FAERS Safety Report 4911121-9 (Version None)
Quarter: 2006Q1

REPORT INFORMATION
  Report Type: 
  Country: None (occurrence: None)
  Receive Date: 20060214
  Receipt Date: 20060202
  Transmission Date: 20060701
  Serious: Yes (Other)
  Sender: FDA-Public Use
  Company Number: FR-JNJFOC-20060200605

PATIENT
  Age: 82 Year
  Sex: Male

DRUGS (1)
  1. REMINYL [Suspect]
     Route: 048

REACTIONS (1)
  - STATUS EPILEPTICUS [None]
